FAERS Safety Report 8953595 (Version 5)
Quarter: 2013Q1

REPORT INFORMATION
  Report Type: Report from Study
  Country: US (occurrence: US)
  Receive Date: 20121206
  Receipt Date: 20130322
  Transmission Date: 20140127
  Serious: Yes (Hospitalization)
  Sender: FDA-Public Use
  Company Number: US-PFIZER INC-2012299363

PATIENT
  Age: 49 Year
  Sex: Female
  Weight: 68.57 kg

DRUGS (15)
  1. FLUOROURACIL [Suspect]
     Indication: COLORECTAL CANCER METASTATIC
     Dosage: 736 MG, CYCLIC, IVP
     Route: 041
     Dates: start: 20121009, end: 20121119
  2. FLUOROURACIL [Suspect]
     Dosage: 4416 MG, CYCLIC, PUMP
     Route: 042
     Dates: start: 20121009, end: 20121119
  3. OXALIPLATIN [Suspect]
     Indication: COLORECTAL CANCER METASTATIC
     Dosage: 156 MG, CYCLIC
     Route: 042
     Dates: start: 20121009, end: 20121119
  4. BEVACIZUMAB [Suspect]
     Indication: COLORECTAL CANCER METASTATIC
     Dosage: 385 MG, CYCLIC
     Route: 042
     Dates: start: 20121009, end: 20121119
  5. LEUCOVORIN [Suspect]
     Indication: COLORECTAL CANCER METASTATIC
     Dosage: 736 MG, CYCLIC
     Route: 042
     Dates: start: 20121009, end: 20121119
  6. ATENOLOL [Concomitant]
     Indication: HYPERTENSION
     Dosage: 25 MG, 2X/DAY
     Dates: start: 20121023
  7. DURAGESIC [Concomitant]
     Indication: ABDOMINAL PAIN
     Dosage: 50 UG/HR
     Dates: start: 20121119
  8. LEXAPRO [Concomitant]
     Indication: DEPRESSION
     Dosage: 10 MG, HS
     Dates: start: 20120828
  9. ATIVAN [Concomitant]
     Indication: NAUSEA
     Dosage: 0.5 MG, Q6H, PRN
     Dates: start: 20121009
  10. RITALIN [Concomitant]
     Indication: NARCOLEPSY
     Dosage: 40 MG, QD
     Dates: start: 20030820
  11. TRAZODONE [Concomitant]
     Indication: INSOMNIA
     Dosage: 100 MG, HS
     Dates: start: 20030820
  12. PREVACID [Concomitant]
     Indication: GASTROOESOPHAGEAL REFLUX DISEASE
     Dosage: 30 MG, 1X/DAY
     Dates: start: 201208
  13. PERI-COLACE [Concomitant]
     Indication: CONSTIPATION
     Dosage: 1 DF, HS
     Dates: start: 201208, end: 20121121
  14. MORPHIN [Concomitant]
     Indication: BREAKTHROUGH PAIN
     Dosage: 15 MG, Q4H PRN
     Dates: start: 20121101
  15. SENOKOT [Concomitant]
     Indication: CONSTIPATION
     Dosage: UNK
     Dates: start: 201208, end: 20121121

REACTIONS (2)
  - Clostridium difficile colitis [Recovered/Resolved]
  - Pain [Recovered/Resolved]
